FAERS Safety Report 6714022-9 (Version None)
Quarter: 2010Q2

REPORT INFORMATION
  Report Type: 
  Country: None (occurrence: None)
  Receive Date: 20100506
  Receipt Date: 20100426
  Transmission Date: 20101027
  Serious: Yes (Other)
  Sender: FDA-Public Use
  Company Number: PHHY2010CA26905

PATIENT
  Age: 17 Year
  Sex: Female

DRUGS (2)
  1. MYFORTIC [Suspect]
     Route: 048
  2. CELEXA [Concomitant]
     Dosage: 10 MG

REACTIONS (2)
  - EPISTAXIS [None]
  - LOSS OF CONSCIOUSNESS [None]
